FAERS Safety Report 10394056 (Version 1)
Quarter: 2014Q3

REPORT INFORMATION
  Report Type: Spontaneous
  Country: US (occurrence: None)
  Receive Date: 20140818
  Receipt Date: 20140818
  Transmission Date: 20150326
  Serious: Yes (Hospitalization)
  Sender: FDA-Public Use
  Company Number: SYM-2014-24253

PATIENT
  Age: 55 Year
  Sex: Female

DRUGS (2)
  1. PRIMIDONE. [Suspect]
     Active Substance: PRIMIDONE
     Indication: INSOMNIA
     Dates: start: 20140728
  2. XYREM [Suspect]
     Active Substance: SODIUM OXYBATE
     Indication: INSOMNIA
     Route: 048
     Dates: start: 201303, end: 2013

REACTIONS (4)
  - Somnolence [None]
  - Delusion [None]
  - Disorientation [None]
  - Incoherent [None]

NARRATIVE: CASE EVENT DATE: 20140730
